FAERS Safety Report 4941636-9 (Version None)
Quarter: 2006Q1

REPORT INFORMATION
  Report Type: 
  Country: None (occurrence: None)
  Receive Date: 20060308
  Receipt Date: 20060227
  Transmission Date: 20060701
  Serious: Yes (Other)
  Sender: FDA-Public Use
  Company Number: HQWYE647803FEB06

PATIENT
  Age: 11 Year
  Sex: Female

DRUGS (1)
  1. ADVIL [Suspect]
     Indication: VARICELLA
     Dosage: THREE TIMES DAILY
     Route: 048
     Dates: start: 20051201

REACTIONS (3)
  - ASTHENIA [None]
  - SCAR [None]
  - SKIN NECROSIS [None]
